FAERS Safety Report 16824614 (Version 1)
Quarter: 2019Q3

REPORT INFORMATION
  Report Type: Spontaneous
  Country: RO (occurrence: RO)
  Receive Date: 20190918
  Receipt Date: 20190918
  Transmission Date: 20191005
  Serious: Yes (Life-Threatening)
  Sender: FDA-Public Use
  Company Number: RO-ELI_LILLY_AND_COMPANY-RO201909006807

PATIENT
  Age: 61 Year
  Sex: Female
  Weight: 122 kg

DRUGS (3)
  1. BENFOTIAMINE;CYANOCOBALAMIN;PYRIDOXINE HCL [Concomitant]
     Dosage: 40/250/90MG
     Route: 065
  2. TRULICITY [Suspect]
     Active Substance: DULAGLUTIDE
     Indication: PRODUCT USED FOR UNKNOWN INDICATION
     Dosage: 1 DOSAGE FORM, WEEKLY (1/W)
     Route: 058
     Dates: start: 20190610, end: 20190617
  3. SIOFOR [Concomitant]
     Active Substance: METFORMIN HYDROCHLORIDE
     Dosage: 1000 MG, UNKNOWN
     Route: 065

REACTIONS (6)
  - Hypertension [Recovered/Resolved]
  - Asphyxia [Recovered/Resolved]
  - Injection site mass [Recovered/Resolved]
  - Vertigo [Recovered/Resolved]
  - Pyrexia [Recovered/Resolved]
  - Respiratory failure [Recovered/Resolved]

NARRATIVE: CASE EVENT DATE: 20190610
